FAERS Safety Report 16924254 (Version 1)
Quarter: 2019Q4

REPORT INFORMATION
  Report Type: Spontaneous
  Country: US (occurrence: US)
  Receive Date: 20191016
  Receipt Date: 20191016
  Transmission Date: 20200122
  Serious: Yes (Life-Threatening, Hospitalization, Other)
  Sender: FDA-Public Use
  Company Number: US-MACLEODS PHARMACEUTICALS US LTD-MAC2019023324

PATIENT

DRUGS (3)
  1. CARVEDILOL 12.5 MG [Suspect]
     Active Substance: CARVEDILOL
     Indication: SUICIDE ATTEMPT
     Dosage: 60 DOSAGE FORM, SINGLE
     Route: 048
  2. AMLODIPINE BESYLATE 10MG TABLET [Suspect]
     Active Substance: AMLODIPINE BESYLATE
     Indication: SUICIDE ATTEMPT
     Dosage: 30 DOSAGE FORM, SINGLE
     Route: 048
  3. HYDROCHLOROTHIAZIDE 25 MG, LISINOPRIL 20 MG [Suspect]
     Active Substance: HYDROCHLOROTHIAZIDE\LISINOPRIL
     Indication: SUICIDE ATTEMPT
     Dosage: 25/20 MG TABLET
     Route: 048

REACTIONS (8)
  - Electrocardiogram QRS complex prolonged [Recovered/Resolved]
  - Atrioventricular block first degree [Recovered/Resolved]
  - Blood creatinine increased [Recovered/Resolved]
  - Sinus bradycardia [Recovered/Resolved]
  - Intentional overdose [Recovered/Resolved]
  - Electrocardiogram QT prolonged [Recovered/Resolved]
  - Shock [Recovered/Resolved]
  - Bundle branch block [Recovered/Resolved]
